FAERS Safety Report 7306119-X (Version None)
Quarter: 2011Q1

REPORT INFORMATION
  Report Type: 
  Country: None (occurrence: None)
  Receive Date: 20110222
  Receipt Date: 20110211
  Transmission Date: 20110831
  Serious: Yes (Other)
  Sender: FDA-Public Use
  Company Number: CHPA2011US02665

PATIENT
  Age: 53 Year
  Sex: Female
  Weight: 133.79 kg

DRUGS (22)
  1. ADVAIR [Concomitant]
  2. TOPROL-XL [Concomitant]
  3. CHANTIX [Suspect]
     Dosage: 0.5 MG, QD
     Route: 048
     Dates: start: 20110101
  4. LOVAZA [Concomitant]
     Dosage: BID
  5. ALBUTEROL [Concomitant]
  6. NEURONTIN [Concomitant]
     Dosage: 400 MG TID
  7. MULTI-VITAMINS [Concomitant]
  8. ZOCOR [Concomitant]
     Dosage: 20 MG ONCE A DAY
  9. LASIX [Concomitant]
     Dosage: 80 MG
  10. NAPROXEN [Concomitant]
  11. IBUPROFEN [Concomitant]
  12. SYNTHROID [Concomitant]
     Dosage: 200 MCG ONCE A DAY
  13. POTASSIUM CHLORIDE [Concomitant]
  14. SPIRIVA [Concomitant]
  15. MOBIC [Concomitant]
  16. AMBIEN [Concomitant]
     Dosage: 10 MG
  17. TYLENOL [Concomitant]
     Dosage: 500 MG
  18. VOLTAREN [Suspect]
     Indication: EXOSTOSIS
     Dosage: 4 G, QID
     Route: 061
  19. CHANTIX [Suspect]
     Indication: SMOKING CESSATION THERAPY
     Dosage: 1 MG, BID
     Route: 048
     Dates: start: 20110101
  20. PERCOCET [Concomitant]
     Dosage: BID
  21. XANAX [Concomitant]
     Dosage: 1 MG TID
  22. POTASSIUM [Concomitant]
     Dosage: 20 MCG

REACTIONS (14)
  - HEADACHE [None]
  - OROPHARYNGEAL BLISTERING [None]
  - ABDOMINAL DISCOMFORT [None]
  - POISONING [None]
  - INSOMNIA [None]
  - NAUSEA [None]
  - GINGIVAL BLISTER [None]
  - DIARRHOEA [None]
  - BLOOD GLUCOSE INCREASED [None]
  - STRESS [None]
  - FEELING COLD [None]
  - CONSTIPATION [None]
  - NIGHTMARE [None]
  - OEDEMA [None]
